FAERS Safety Report 8365200-7 (Version None)
Quarter: 2012Q2

REPORT INFORMATION
  Report Type: 
  Country: None (occurrence: None)
  Receive Date: 20120516
  Receipt Date: 20120507
  Transmission Date: 20120825
  Serious: Yes (Hospitalization)
  Sender: FDA-Public Use
  Company Number: US-ASTRAZENECA-2012SE29360

PATIENT
  Age: 58 Year
  Sex: Male
  Weight: 98.9 kg

DRUGS (3)
  1. TOPROL-XL [Suspect]
     Route: 048
     Dates: start: 20010101
  2. ZOCOR [Suspect]
     Route: 065
     Dates: start: 20010101
  3. TRICOR [Suspect]
     Route: 065
     Dates: start: 20010101

REACTIONS (3)
  - BLOOD TRIGLYCERIDES INCREASED [None]
  - OSTEOARTHRITIS [None]
  - HEPATIC ENZYME INCREASED [None]
